FAERS Safety Report 10641649 (Version 2)
Quarter: 2014Q4

REPORT INFORMATION
  Report Type: Spontaneous
  Country: US (occurrence: US)
  Receive Date: 20141209
  Receipt Date: 20141209
  Transmission Date: 20150529
  Serious: Yes (Other)
  Sender: FDA-Public Use
  Company Number: US-JNJFOC-20140609254

PATIENT
  Sex: Male

DRUGS (1)
  1. RISPERDAL [Suspect]
     Active Substance: RISPERIDONE
     Indication: AUTISM
     Route: 048
     Dates: start: 2001, end: 2012

REACTIONS (6)
  - Obesity [Unknown]
  - Hyperlipidaemia [Unknown]
  - Emotional distress [Unknown]
  - Gynaecomastia [Unknown]
  - Vomiting [Unknown]
  - Retching [Unknown]
